FAERS Safety Report 6209250-5 (Version None)
Quarter: 2009Q2

REPORT INFORMATION
  Report Type: 
  Country: None (occurrence: None)
  Receive Date: 20090529
  Receipt Date: 20090515
  Transmission Date: 20091009
  Serious: Yes (Other)
  Sender: FDA-Public Use
  Company Number: GB-BAUSCH-2009BL002392

PATIENT
  Age: 92 Year
  Sex: Male
  Weight: 67 kg

DRUGS (7)
  1. GENTAMICIN [Suspect]
     Indication: PROPHYLAXIS
  2. ASPIRIN [Concomitant]
     Indication: ATRIAL FIBRILLATION
  3. BUPIVACAINE [Concomitant]
     Indication: ANAESTHESIA
  4. FENTANYL [Concomitant]
     Indication: ANAESTHESIA
  5. MIDAZOLAM HCL [Concomitant]
     Indication: ANAESTHESIA
  6. FENTANYL [Concomitant]
  7. TEICOPLANIN [Concomitant]
     Indication: PROPHYLAXIS

REACTIONS (6)
  - BLOOD PRESSURE INCREASED [None]
  - CHILLS [None]
  - HEART RATE INCREASED [None]
  - METABOLIC ACIDOSIS [None]
  - MYALGIA [None]
  - PYREXIA [None]
